FAERS Safety Report 8378117-9 (Version None)
Quarter: 2012Q2

REPORT INFORMATION
  Report Type: 
  Country: None (occurrence: None)
  Receive Date: 20120522
  Receipt Date: 20120511
  Transmission Date: 20120825
  Serious: Yes (Hospitalization)
  Sender: FDA-Public Use
  Company Number: US-ACTELION-A-US2010-40597

PATIENT

DRUGS (1)
  1. TRACLEER [Suspect]
     Indication: PULMONARY ARTERIAL HYPERTENSION
     Dosage: UNK
     Route: 048
     Dates: start: 20060710

REACTIONS (6)
  - CYST [None]
  - LOCALISED INFECTION [None]
  - WOUND TREATMENT [None]
  - SKIN ULCER [None]
  - BLISTER [None]
  - INFECTION [None]
